FAERS Safety Report 20956427 (Version 1)
Quarter: 2022Q2

REPORT INFORMATION
  Report Type: Spontaneous
  Country: US (occurrence: None)
  Receive Date: 20220613
  Receipt Date: 20220613
  Transmission Date: 20220721
  Serious: Yes (Life-Threatening, Hospitalization)
  Sender: FDA-Public Use
  Company Number: None

PATIENT
  Age: 53 Year
  Sex: Female
  Weight: 63.5 kg

DRUGS (1)
  1. OSIMERTINIB [Suspect]
     Active Substance: OSIMERTINIB
     Indication: Lung cancer metastatic
     Dates: start: 20180518, end: 20220106

REACTIONS (4)
  - Acute respiratory failure [None]
  - Pneumonitis [None]
  - Abdominal pain [None]
  - Cough [None]

NARRATIVE: CASE EVENT DATE: 20220105
